FAERS Safety Report 15524415 (Version 1)
Quarter: 2018Q4

REPORT INFORMATION
  Report Type: Spontaneous
  Country: US (occurrence: US)
  Receive Date: 20181015
  Receipt Date: 20181015
  Transmission Date: 20190205
  Serious: Yes (Hospitalization)
  Sender: FDA-Public Use
  Company Number: None

PATIENT
  Age: 45 Year
  Weight: 167.83 kg

DRUGS (1)
  1. OCTAGAM IMMUNE GLOBULIN (HUMAN) [Suspect]
     Active Substance: HUMAN IMMUNOGLOBULIN G
     Indication: POLYMYOSITIS
     Dosage: ?          OTHER DOSE:40G DALY FOR 5 DAY;?
     Route: 042
     Dates: start: 20170828, end: 20180309

REACTIONS (2)
  - Subclavian artery thrombosis [None]
  - Jugular vein thrombosis [None]

NARRATIVE: CASE EVENT DATE: 20180328
